FAERS Safety Report 25980320 (Version 1)
Quarter: 2025Q4

REPORT INFORMATION
  Report Type: Spontaneous
  Country: US (occurrence: US)
  Receive Date: 20251030
  Receipt Date: 20251030
  Transmission Date: 20260117
  Serious: No
  Sender: LNHC, INC.
  Company Number: US-LNHC, INC.-2025PEL00019

PATIENT

DRUGS (1)
  1. ZELSUVMI [Suspect]
     Active Substance: BERDAZIMER SODIUM
     Route: 061

REACTIONS (1)
  - Application site rash [Unknown]
